FAERS Safety Report 25090805 (Version 1)
Quarter: 2025Q1

REPORT INFORMATION
  Report Type: Spontaneous
  Country: HR (occurrence: None)
  Receive Date: 20250318
  Receipt Date: 20250318
  Transmission Date: 20250409
  Serious: Yes (Other)
  Sender: INCYTE
  Company Number: HR-002147023-NVSC2025HR043729

PATIENT

DRUGS (6)
  1. RUXOLITINIB [Suspect]
     Active Substance: RUXOLITINIB
     Indication: Polycythaemia vera
     Route: 065
  2. RUXOLITINIB [Suspect]
     Active Substance: RUXOLITINIB
     Indication: Myelofibrosis
     Dosage: 25 MG, BID
     Route: 065
  3. RUXOLITINIB [Suspect]
     Active Substance: RUXOLITINIB
     Route: 065
  4. PEGINTERFERON ALFA-2A [Concomitant]
     Active Substance: PEGINTERFERON ALFA-2A
     Indication: Product used for unknown indication
     Route: 065
  5. NAVTEMADLIN [Concomitant]
     Active Substance: NAVTEMADLIN
     Indication: Product used for unknown indication
     Route: 065
  6. ROPEGINTERFERON ALFA-2B [Concomitant]
     Active Substance: ROPEGINTERFERON ALFA-2B
     Indication: Product used for unknown indication
     Route: 065

REACTIONS (7)
  - Fatigue [Unknown]
  - Myocardial infarction [Unknown]
  - Splenomegaly [Unknown]
  - Haematocrit increased [Unknown]
  - Platelet count increased [Unknown]
  - Myelofibrosis [Unknown]
  - Pruritus [Unknown]
